FAERS Safety Report 4686958-4 (Version None)
Quarter: 2005Q2

REPORT INFORMATION
  Report Type: 
  Country: None (occurrence: None)
  Receive Date: 20050608
  Receipt Date: 20050524
  Transmission Date: 20051028
  Serious: Yes (Other)
  Sender: FDA-Public Use
  Company Number: 2005078951

PATIENT
  Sex: Female
  Weight: 79.3795 kg

DRUGS (8)
  1. CELEBREX [Suspect]
     Indication: BACK PAIN
     Dosage: 200 MG (200 MG, 1 IN 1 D), ORAL
     Route: 048
  2. CHEMOTHERAPY NOS (CHEMOTHERAPY NOS) [Suspect]
     Indication: LUNG NEOPLASM MALIGNANT
     Dates: start: 20040101
  3. CHEMOTHERAPY NOS (CHEMOTHERAPY NOS) [Suspect]
     Indication: THROAT CANCER
     Dates: start: 20040101
  4. CORTICOSTEROIDS, OTHER COMBINATIONS (CORTICOSTEROIDS, OTHER COMBINATIO [Suspect]
     Indication: HEPATIC NEOPLASM MALIGNANT
     Dates: start: 20050101
  5. ANTIHYPERTENSIVES (ANTIHYPERTENSIVES) [Concomitant]
  6. LASIX [Concomitant]
  7. ALL OTHER THERAPEUTIC PRODUCTS (ALL OTHER THERAPEUTIC PRODUCTS) [Concomitant]
  8. ANXIOLYTICS (ANXIOLYTICS) [Concomitant]

REACTIONS (4)
  - BLOOD PRESSURE DECREASED [None]
  - HEPATIC NEOPLASM MALIGNANT [None]
  - SMALL CELL LUNG CANCER STAGE UNSPECIFIED [None]
  - THROAT CANCER [None]
